FAERS Safety Report 11401621 (Version 1)
Quarter: 2015Q3

REPORT INFORMATION
  Report Type: Spontaneous
  Country: US (occurrence: US)
  Receive Date: 20150821
  Receipt Date: 20150821
  Transmission Date: 20151125
  Serious: Yes (Other)
  Sender: FDA-Public Use
  Company Number: US-ROCHE-1621688

PATIENT
  Age: 64 Year
  Sex: Male
  Weight: 80 kg

DRUGS (1)
  1. MIRCERA [Suspect]
     Active Substance: METHOXY POLYETHYLENE GLYCOL-EPOETIN BETA
     Indication: PRODUCT USED FOR UNKNOWN INDICATION
     Dosage: TOTAL DOSES ADMINISTERED TO DATE: 50 MCG
     Route: 042
     Dates: start: 20150727, end: 20150727

REACTIONS (4)
  - Flushing [Unknown]
  - Flushing [Recovered/Resolved]
  - Restlessness [Recovered/Resolved]
  - Restlessness [Unknown]

NARRATIVE: CASE EVENT DATE: 20150727
